FAERS Safety Report 21077225 (Version 1)
Quarter: 2022Q3

REPORT INFORMATION
  Report Type: Spontaneous
  Country: US (occurrence: US)
  Receive Date: 20220713
  Receipt Date: 20220713
  Transmission Date: 20221027
  Serious: No
  Sender: FDA-Public Use
  Company Number: US-BRISTOL-MYERS SQUIBB COMPANY-2022-073315

PATIENT
  Age: 77 Year
  Sex: Female
  Weight: 74.39 kg

DRUGS (1)
  1. REVLIMID [Suspect]
     Active Substance: LENALIDOMIDE
     Indication: Plasma cell myeloma
     Dosage: 1 CAPSULE DAILY ON DAYS 1-14, THEN OFF 7 DAYS, THEN REPEAT.
     Route: 048
     Dates: start: 20220427

REACTIONS (1)
  - Product dose omission issue [Unknown]
